FAERS Safety Report 5301214-9 (Version None)
Quarter: 2007Q2

REPORT INFORMATION
  Report Type: 
  Country: None (occurrence: None)
  Receive Date: 20070418
  Receipt Date: 20070406
  Transmission Date: 20071010
  Serious: Yes (Other)
  Sender: FDA-Public Use
  Company Number: US-AMGEN-STX205902

PATIENT
  Sex: Female

DRUGS (3)
  1. ENBREL [Suspect]
     Indication: PSORIATIC ARTHROPATHY
     Route: 058
     Dates: start: 20060601
  2. ENBREL [Suspect]
     Indication: PSORIASIS
  3. IMURAN [Concomitant]
     Route: 065
     Dates: start: 20010101

REACTIONS (12)
  - ARTHRALGIA [None]
  - ASTHMA [None]
  - CHEST PAIN [None]
  - GAMMA-GLUTAMYLTRANSFERASE INCREASED [None]
  - HYPOKALAEMIA [None]
  - INJECTION SITE PAIN [None]
  - INJECTION SITE WARMTH [None]
  - LIPIDS INCREASED [None]
  - MUSCLE SPASMS [None]
  - PERICARDITIS [None]
  - STRIDOR [None]
  - TREMOR [None]
